FAERS Safety Report 13108045 (Version 1)
Quarter: 2017Q1

REPORT INFORMATION
  Report Type: Spontaneous
  Country: US (occurrence: US)
  Receive Date: 20170112
  Receipt Date: 20170112
  Transmission Date: 20170428
  Serious: No
  Sender: FDA-Public Use
  Company Number: US-PFIZER INC-2017011166

PATIENT
  Sex: Female

DRUGS (1)
  1. ADVIL [Suspect]
     Active Substance: IBUPROFEN
     Dosage: 3 TO 4 CAPSULES, DAILY

REACTIONS (3)
  - Drug intolerance [Unknown]
  - Somnolence [Unknown]
  - Asthenia [Unknown]
